FAERS Safety Report 8035131-0 (Version None)
Quarter: 2012Q1

REPORT INFORMATION
  Report Type: 
  Country: None (occurrence: None)
  Receive Date: 20120111
  Receipt Date: 20120105
  Transmission Date: 20120608
  Serious: Yes (Hospitalization, Other)
  Sender: FDA-Public Use
  Company Number: US-BIOGENIDEC-2012BI000665

PATIENT
  Sex: Female

DRUGS (1)
  1. AVONEX [Suspect]
     Indication: MULTIPLE SCLEROSIS
     Route: 030
     Dates: start: 20060101

REACTIONS (4)
  - TRANSIENT ISCHAEMIC ATTACK [None]
  - CONVULSION [None]
  - CEREBROVASCULAR ACCIDENT [None]
  - ADVERSE DRUG REACTION [None]
